FAERS Safety Report 12919051 (Version 1)
Quarter: 2016Q4

REPORT INFORMATION
  Report Type: Spontaneous
  Country: NO (occurrence: NO)
  Receive Date: 20161108
  Receipt Date: 20161108
  Transmission Date: 20170207
  Serious: Yes (Life-Threatening, Hospitalization, Other)
  Sender: FDA-Public Use
  Company Number: NO-HORIZON-PRE-0321-2016

PATIENT
  Sex: Male

DRUGS (8)
  1. METHYLPREDNISOLONE. [Suspect]
     Active Substance: METHYLPREDNISOLONE
     Indication: ANAEMIA
     Dosage: HIGH DOSES
     Route: 042
     Dates: start: 201508
  2. ENDOXAN [Suspect]
     Active Substance: CYCLOPHOSPHAMIDE
     Indication: AUTOIMMUNE HAEMOLYTIC ANAEMIA
     Route: 048
     Dates: start: 201503
  3. RITUXIMAB [Suspect]
     Active Substance: RITUXIMAB
     Indication: AUTOIMMUNE HAEMOLYTIC ANAEMIA
     Dates: start: 2014, end: 201501
  4. SENDOXAN [Suspect]
     Active Substance: CYCLOPHOSPHAMIDE
     Indication: AUTOIMMUNE HAEMOLYTIC ANAEMIA
     Dosage: HIGH DOSES
     Route: 042
     Dates: start: 20150827
  5. SENDOXAN [Suspect]
     Active Substance: CYCLOPHOSPHAMIDE
     Indication: DISEASE RECURRENCE
  6. PREDNISONE. [Suspect]
     Active Substance: PREDNISONE
     Indication: IMMUNOSUPPRESSANT DRUG THERAPY
     Dosage: 30 MG DAILY
     Dates: start: 201508
  7. ENDOXAN [Suspect]
     Active Substance: CYCLOPHOSPHAMIDE
     Indication: DISEASE RECURRENCE
  8. OCTAGAM IMMUNE GLOBULIN (HUMAN) [Suspect]
     Active Substance: HUMAN IMMUNOGLOBULIN G
     Indication: ANAEMIA
     Dosage: HIGH DOSES
     Route: 042
     Dates: start: 201508

REACTIONS (4)
  - Pericardial effusion [Unknown]
  - Cardiac sarcoidosis [Unknown]
  - Hypogammaglobulinaemia [Recovered/Resolved]
  - Anaemia [Recovering/Resolving]

NARRATIVE: CASE EVENT DATE: 2015
